FAERS Safety Report 15008468 (Version 3)
Quarter: 2018Q3

REPORT INFORMATION
  Report Type: Spontaneous
  Country: US (occurrence: US)
  Receive Date: 20180613
  Receipt Date: 20180709
  Transmission Date: 20181010
  Serious: Yes (Hospitalization)
  Sender: FDA-Public Use
  Company Number: US-OTSUKA-2018_015696

PATIENT
  Sex: Male

DRUGS (1)
  1. ABILIFY [Suspect]
     Active Substance: ARIPIPRAZOLE
     Indication: SCHIZOPHRENIA
     Dosage: 10 MG, QD
     Route: 065
     Dates: start: 200807, end: 201208

REACTIONS (7)
  - Emotional distress [Unknown]
  - Neuropsychiatric symptoms [Unknown]
  - Gambling disorder [Recovered/Resolved]
  - Injury [Unknown]
  - Mental disorder [Unknown]
  - Divorced [Unknown]
  - Economic problem [Unknown]
